FAERS Safety Report 8764376 (Version 3)
Quarter: 2012Q4

REPORT INFORMATION
  Report Type: 
  Country: NO (occurrence: NO)
  Receive Date: 20120831
  Receipt Date: 20121126
  Transmission Date: 20130627
  Serious: Yes (Other)
  Sender: FDA-Public Use
  Company Number: PHHY2012NO074066

PATIENT
  Age: 68 Year
  Sex: Female

DRUGS (10)
  1. PANTOPRAZOLE [Suspect]
     Indication: GASTROOESOPHAGEAL REFLUX DISEASE
     Dosage: 40 mg, daily
  2. LANSOPRAZOLE [Suspect]
     Indication: GASTROOESOPHAGEAL REFLUX DISEASE
     Dosage: 30 mg, daily
  3. METFORMIN [Concomitant]
     Dosage: 500 mg, daily
  4. GLIBENCLAMID [Concomitant]
     Dosage: 1.75 mg, daily
  5. METOCLOPRAMIDE [Concomitant]
     Dosage: 10-30 mg, UNK
  6. FLUNITRAZEPAM [Concomitant]
     Dosage: 1 mg, daily
  7. DIAZEPAM [Concomitant]
     Dosage: 5 mg, daily
  8. PARACETAMOL [Concomitant]
     Dosage: 500 mg-1 g, UNK
  9. AMLODIPINE [Concomitant]
     Dosage: 10 mg, daily
  10. LEVOTHYROXINE [Concomitant]
     Dosage: 50 ug, dailly

REACTIONS (5)
  - Carcinoid tumour of the stomach [Recovered/Resolved]
  - Neuroendocrine tumour [Recovered/Resolved]
  - Hypergastrinaemia [Unknown]
  - Dyspepsia [Unknown]
  - Enterochromaffin cell hyperplasia [Recovered/Resolved]
